FAERS Safety Report 7629397-6 (Version None)
Quarter: 2011Q3

REPORT INFORMATION
  Report Type: 
  Country: None (occurrence: None)
  Receive Date: 20110714
  Receipt Date: 20110701
  Transmission Date: 20111222
  Serious: Yes (Hospitalization, Other)
  Sender: FDA-Public Use
  Company Number: 2010SP006063

PATIENT
  Age: 40 Year
  Sex: Female
  Weight: 81.6475 kg

DRUGS (15)
  1. FLONASE [Concomitant]
  2. CYMBALTA [Concomitant]
  3. COUMADIN [Suspect]
     Indication: PULMONARY EMBOLISM
     Dosage: 5 MG;QD
     Dates: start: 20080601
  4. BENAZEPRIL HYDROCHLORIDE AND HYDROCHLOROTHIAZIDE [Concomitant]
  5. ANAPROX DS [Concomitant]
  6. DIFLUCAN [Concomitant]
  7. HYDROCHLOROTHIAZIDE [Concomitant]
  8. KEPPRA [Concomitant]
  9. FLAGYL [Concomitant]
  10. NUVARING [Suspect]
     Indication: UTERINE LEIOMYOMA
     Dates: start: 20071201, end: 20080622
  11. BACTRIM DS [Concomitant]
  12. VALIUM [Concomitant]
  13. TUSSIONEX [Concomitant]
  14. SINGULAIR [Concomitant]
  15. IBUPROFEN [Concomitant]

REACTIONS (28)
  - HYPOKALAEMIA [None]
  - TENDERNESS [None]
  - BURNING SENSATION [None]
  - MULTIPLE SCLEROSIS [None]
  - LYME DISEASE [None]
  - HYPERTENSION [None]
  - MENORRHAGIA [None]
  - DIZZINESS [None]
  - HYPERVENTILATION [None]
  - VULVOVAGINITIS [None]
  - CYSTITIS [None]
  - URINARY TRACT INFECTION [None]
  - DEMYELINATION [None]
  - IRON DEFICIENCY ANAEMIA [None]
  - ANXIETY [None]
  - PROTEIN S INCREASED [None]
  - PRODUCTIVE COUGH [None]
  - RHINITIS ALLERGIC [None]
  - PARAESTHESIA [None]
  - PULMONARY EMBOLISM [None]
  - PYREXIA [None]
  - VASCULITIS [None]
  - CONDITION AGGRAVATED [None]
  - HAEMATOCHEZIA [None]
  - VULVOVAGINAL MYCOTIC INFECTION [None]
  - DYSFUNCTIONAL UTERINE BLEEDING [None]
  - VERTIGO [None]
  - SINUSITIS [None]
